FAERS Safety Report 7555602-0 (Version None)
Quarter: 2011Q2

REPORT INFORMATION
  Report Type: 
  Country: None (occurrence: None)
  Receive Date: 20110617
  Receipt Date: 20010207
  Transmission Date: 20111010
  Serious: Yes (Other)
  Sender: FDA-Public Use
  Company Number: PHEH2001US01486

PATIENT

DRUGS (4)
  1. EXELON [Suspect]
     Indication: DEMENTIA ALZHEIMER'S TYPE
     Dosage: 1.5 MG, BID
     Route: 048
     Dates: start: 20010110
  2. PRILOSEC [Concomitant]
  3. GINKGO BILOBA [Concomitant]
  4. VITAMIN E [Concomitant]

REACTIONS (5)
  - SUPRAVENTRICULAR TACHYCARDIA [None]
  - CARDIOMEGALY [None]
  - DIZZINESS [None]
  - BUNDLE BRANCH BLOCK [None]
  - CHEST DISCOMFORT [None]
